FAERS Safety Report 7944916-8 (Version None)
Quarter: 2011Q4

REPORT INFORMATION
  Report Type: 
  Country: None (occurrence: None)
  Receive Date: 20111129
  Receipt Date: 20111024
  Transmission Date: 20120403
  Serious: No
  Sender: FDA-Public Use
  Company Number: US-MYLANLABS-2011S1022032

PATIENT
  Age: 49 Year
  Sex: Female

DRUGS (9)
  1. ZOLOFT [Concomitant]
  2. LEVETIRACETAM [Suspect]
     Indication: EPILEPSY
     Route: 048
     Dates: start: 20111005, end: 20111021
  3. SINGULAIR [Concomitant]
  4. ALAVERT [Concomitant]
  5. SIMVASTATIN [Concomitant]
     Indication: BLOOD CHOLESTEROL INCREASED
  6. OMEPRAZOLE [Concomitant]
     Indication: GASTROOESOPHAGEAL REFLUX DISEASE
  7. ADVAIR DISKUS 100/50 [Concomitant]
     Dosage: 1 PUFF
  8. ACTOS [Concomitant]
  9. METFORMIN HCL [Concomitant]

REACTIONS (1)
  - HYPERSENSITIVITY [None]
